FAERS Safety Report 20911705 (Version 4)
Quarter: 2022Q3

REPORT INFORMATION
  Report Type: Spontaneous
  Country: US (occurrence: US)
  Receive Date: 20220603
  Receipt Date: 20220818
  Transmission Date: 20221027
  Serious: No
  Sender: FDA-Public Use
  Company Number: US-PFIZER INC-202200787124

PATIENT
  Age: 52 Year
  Sex: Female
  Weight: 55.329 kg

DRUGS (4)
  1. PAXLOVID [Suspect]
     Active Substance: NIRMATRELVIR\RITONAVIR
     Indication: COVID-19 treatment
     Dosage: [PF-07321332 300 MG]/[RITONAVIR 100 MG]; 2X/DAY
     Route: 048
     Dates: start: 20220531, end: 20220601
  2. PROBIOTIC GUMMIES [Concomitant]
     Dosage: UNK
     Dates: start: 201909, end: 20220601
  3. PROBIOTIC GUMMIES [Concomitant]
     Dosage: UNK
     Dates: start: 2022
  4. CYCLOBENZAPRINE [Concomitant]
     Active Substance: CYCLOBENZAPRINE
     Dosage: UNK, AS NEEDED (PRN)
     Dates: start: 20210726

REACTIONS (2)
  - Rash pruritic [Recovered/Resolved]
  - Urticaria [Recovered/Resolved]

NARRATIVE: CASE EVENT DATE: 20220531
